FAERS Safety Report 8867791 (Version 1)
Quarter: 2012Q4

REPORT INFORMATION
  Report Type: 
  Country: US (occurrence: US)
  Receive Date: 20121025
  Receipt Date: 20121025
  Transmission Date: 20130627
  Serious: No
  Sender: FDA-Public Use
  Company Number: US-AMGEN-USASP2012018433

PATIENT
  Age: 64 Year
  Sex: Male
  Weight: 140.59 kg

DRUGS (12)
  1. ENBREL [Suspect]
     Indication: PRODUCT USED FOR UNKNOWN INDICATION
     Dosage: 50 mg, qwk
  2. THEO-24 [Concomitant]
     Dosage: 300 mg, UNK
  3. JANUMET [Concomitant]
  4. MULTIVITAMIN                       /00097801/ [Concomitant]
  5. METHOTREXATE [Concomitant]
  6. ADVAIR [Concomitant]
  7. ALBUTEROL                          /00139501/ [Concomitant]
  8. IPRATROPIUM [Concomitant]
  9. DIOVAN [Concomitant]
     Dosage: 320 mg, UNK
  10. PRAVASTATIN [Concomitant]
     Dosage: 40 mg, UNK
  11. POTASSIUM [Concomitant]
     Dosage: 75 mg, UNK
  12. FOLIC ACID [Concomitant]

REACTIONS (1)
  - Pneumonia [Recovered/Resolved]
